FAERS Safety Report 5102952-3 (Version None)
Quarter: 2006Q3

REPORT INFORMATION
  Report Type: 
  Country: None (occurrence: None)
  Receive Date: 20060907
  Receipt Date: 20060817
  Transmission Date: 20061208
  Serious: Yes (Hospitalization)
  Sender: FDA-Public Use
  Company Number: AT200606004218

PATIENT
  Age: 82 Year
  Sex: Female

DRUGS (11)
  1. FORTEO [Suspect]
     Indication: OSTEOPOROSIS
     Dosage: 20 UG, DAILY (1/D), SUBCUTANEOUS
     Route: 058
     Dates: start: 20060201
  2. FORTEO [Concomitant]
  3. METHYLPREDNISOLONE [Concomitant]
  4. DUROGESIC /DEN/ (FENTANYL) [Concomitant]
  5. MADOPAR (BENSERAZIDE HYDROCHLORIDE, LEVODOPA) [Concomitant]
  6. GLADEM /SCH/ (SERTRALINE HYDROCHLORIDE) [Concomitant]
  7. LASIX [Concomitant]
  8. DILTIAZEM HYDROCHLORIDE [Concomitant]
  9. AGAFFIN (SODIUM PICOSULFATE) [Concomitant]
  10. LORAZEPAM [Concomitant]
  11. SEROPRAM /SCH/ (CITLAOPRAM HYDROBROMIDE) [Concomitant]

REACTIONS (5)
  - DIVERTICULITIS [None]
  - LARGE INTESTINE PERFORATION [None]
  - PERITONITIS [None]
  - ULNA FRACTURE [None]
  - WALKING AID USER [None]
